FAERS Safety Report 10019099 (Version 1)
Quarter: 2014Q1

REPORT INFORMATION
  Report Type: Spontaneous
  Country: BR (occurrence: BR)
  Receive Date: 20140318
  Receipt Date: 20140318
  Transmission Date: 20141002
  Serious: Yes (Other)
  Sender: FDA-Public Use
  Company Number: BR-PFIZER INC-2014073327

PATIENT
  Age: 79 Year
  Sex: Female
  Weight: 31 kg

DRUGS (3)
  1. XALATAN [Suspect]
     Indication: GLAUCOMA
     Dosage: UNK
  2. ALPHAGAN [Concomitant]
  3. FRESH TEARS [Concomitant]

REACTIONS (1)
  - Cataract [Unknown]
